FAERS Safety Report 8474149-0 (Version None)
Quarter: 2012Q2

REPORT INFORMATION
  Report Type: 
  Country: None (occurrence: None)
  Receive Date: 20120622
  Receipt Date: 20120622
  Transmission Date: 20120825
  Serious: Yes (Hospitalization, Disabling)
  Sender: FDA-Public Use
  Company Number: None

PATIENT
  Age: 34 Year
  Sex: Female
  Weight: 68.0396 kg

DRUGS (1)
  1. ACCUTANE [Suspect]
     Indication: ACNE
     Dosage: DAILY PO
     Route: 048
     Dates: start: 19851001, end: 19890601

REACTIONS (4)
  - SOFT TISSUE DISORDER [None]
  - ARTHROPATHY [None]
  - RHEUMATOID ARTHRITIS [None]
  - PAIN [None]
